FAERS Safety Report 14426703 (Version 3)
Quarter: 2018Q1

REPORT INFORMATION
  Report Type: Spontaneous
  Country: US (occurrence: US)
  Receive Date: 20180123
  Receipt Date: 20180306
  Transmission Date: 20180509
  Serious: Yes (Hospitalization, Other)
  Sender: FDA-Public Use
  Company Number: US-GLAXOSMITHKLINE-US2018011251

PATIENT
  Age: 81 Year
  Sex: Male

DRUGS (1)
  1. ANORO ELLIPTA [Suspect]
     Active Substance: UMECLIDINIUM BROMIDE\VILANTEROL TRIFENATATE
     Indication: CHRONIC OBSTRUCTIVE PULMONARY DISEASE
     Dosage: 1 PUFF(S), 1D
     Route: 055
     Dates: start: 201703

REACTIONS (7)
  - Cardiac valve disease [Recovering/Resolving]
  - Product quality issue [Unknown]
  - Cardiac disorder [Recovering/Resolving]
  - Heart valve stenosis [Recovering/Resolving]
  - Heart valve replacement [Recovering/Resolving]
  - Coronary artery bypass [Recovering/Resolving]
  - Extra dose administered [Not Recovered/Not Resolved]

NARRATIVE: CASE EVENT DATE: 2017
